FAERS Safety Report 4695922-0 (Version None)
Quarter: 2005Q2

REPORT INFORMATION
  Report Type: 
  Country: None (occurrence: None)
  Receive Date: 20050621
  Receipt Date: 20050603
  Transmission Date: 20051028
  Serious: Yes (Hospitalization)
  Sender: FDA-Public Use
  Company Number: JP-MERCK-0506USA01488

PATIENT
  Age: 78 Year
  Sex: Female

DRUGS (9)
  1. PEPCID RPD [Suspect]
     Indication: GASTRITIS
     Route: 048
     Dates: start: 20041101, end: 20050401
  2. CYANOCOBALAMIN [Concomitant]
     Indication: PERIPHERAL VASCULAR DISORDER
     Route: 048
  3. VITAMIN E NICOTINATE [Concomitant]
     Indication: PERIPHERAL VASCULAR DISORDER
     Route: 048
     Dates: end: 20050523
  4. ONEALFA [Concomitant]
     Indication: OSTEOPOROSIS
     Route: 048
     Dates: end: 20050523
  5. [THERAPY UNSPECIFIED] [Concomitant]
     Indication: DYSPEPSIA
     Route: 048
     Dates: start: 20050404, end: 20050523
  6. TAKEPRON [Concomitant]
     Indication: REFLUX OESOPHAGITIS
     Route: 048
     Dates: start: 20050404, end: 20050526
  7. RINLAXER [Concomitant]
     Indication: SPINAL OSTEOARTHRITIS
     Route: 048
     Dates: end: 20050523
  8. SOLON [Concomitant]
     Indication: GASTRITIS
     Route: 048
     Dates: end: 20050523
  9. ALOSENN [Concomitant]
     Indication: CONSTIPATION
     Route: 048

REACTIONS (2)
  - ANAEMIA [None]
  - REFLUX OESOPHAGITIS [None]
